FAERS Safety Report 25688382 (Version 1)
Quarter: 2025Q3

REPORT INFORMATION
  Report Type: Spontaneous
  Country: DO (occurrence: DO)
  Receive Date: 20250818
  Receipt Date: 20250818
  Transmission Date: 20251020
  Serious: Yes (Other)
  Sender: TAKEDA
  Company Number: DO-TAKEDA-2025TUS072079

PATIENT
  Sex: Male

DRUGS (1)
  1. ICLUSIG [Suspect]
     Active Substance: PONATINIB HYDROCHLORIDE
     Indication: Chronic myeloid leukaemia

REACTIONS (2)
  - No adverse event [Unknown]
  - Therapy non-responder [Unknown]
